FAERS Safety Report 16483053 (Version 4)
Quarter: 2021Q1

REPORT INFORMATION
  Report Type: Spontaneous
  Country: DE (occurrence: DE)
  Receive Date: 20190627
  Receipt Date: 20210311
  Transmission Date: 20210419
  Serious: Yes (Other)
  Sender: FDA-Public Use
  Company Number: PHHY2019DE146139

PATIENT
  Age: 33 Year
  Sex: Male

DRUGS (16)
  1. METHYLPREDNISOLONE ACETATE. [Suspect]
     Active Substance: METHYLPREDNISOLONE ACETATE
     Indication: IMMUNOSUPPRESSION
     Dosage: 250 MG, 2X/DAY(2X250 MG/DAY)
     Route: 042
  2. CYCLOSPORINE. [Suspect]
     Active Substance: CYCLOSPORINE
     Indication: IMMUNOSUPPRESSION
     Dosage: 300 MG, 2X/DAY
     Route: 048
  3. ACICLOVIR [Concomitant]
     Active Substance: ACYCLOVIR
     Indication: PRODUCT USED FOR UNKNOWN INDICATION
     Dosage: UNK
     Route: 065
  4. AZTREONAM. [Concomitant]
     Active Substance: AZTREONAM
     Indication: PYREXIA
     Dosage: UNK
     Route: 065
  5. CYCLOSPORINE. [Suspect]
     Active Substance: CYCLOSPORINE
     Indication: PROPHYLAXIS AGAINST GRAFT VERSUS HOST DISEASE
     Dosage: 100 TO 200 MG
     Route: 065
  6. CYCLOSPORINE. [Suspect]
     Active Substance: CYCLOSPORINE
     Indication: PROPHYLAXIS AGAINST GRAFT VERSUS HOST DISEASE
     Dosage: 4 MG/KG, DAILY (FOR 12 H,INFUSION, RANGE OF 0.6 TO 4.0 MG/KG TO MAINTAIN)
     Route: 042
  7. CYCLOSPORINE. [Suspect]
     Active Substance: CYCLOSPORINE
     Indication: IMMUNOSUPPRESSION
  8. FUROSEMIDE. [Concomitant]
     Active Substance: FUROSEMIDE
     Indication: PRODUCT USED FOR UNKNOWN INDICATION
     Dosage: UNK
     Route: 065
  9. CLINDAMYCIN PHOSPHATE. [Concomitant]
     Active Substance: CLINDAMYCIN PHOSPHATE
     Indication: EVIDENCE BASED TREATMENT
  10. CYCLOPHOSPHAMIDE. [Concomitant]
     Active Substance: CYCLOPHOSPHAMIDE
     Indication: PRODUCT USED FOR UNKNOWN INDICATION
     Dosage: UNK
     Route: 065
  11. PETHIDINE [Concomitant]
     Active Substance: MEPERIDINE
     Indication: ANAESTHESIA
     Dosage: UNK
     Route: 065
  12. METHYLPREDNISOLONE ACETATE. [Suspect]
     Active Substance: METHYLPREDNISOLONE ACETATE
     Indication: GRAFT VERSUS HOST DISEASE
     Dosage: 64 MG, 2X/DAY (2X64 MG/D)
     Route: 042
  13. CLINDAMYCIN PHOSPHATE. [Concomitant]
     Active Substance: CLINDAMYCIN PHOSPHATE
     Indication: PYREXIA
     Dosage: UNK
     Route: 065
  14. METHOTREXATE SODIUM. [Concomitant]
     Active Substance: METHOTREXATE SODIUM
     Indication: PROPHYLAXIS AGAINST GRAFT VERSUS HOST DISEASE
     Dosage: 15 MG/M2, UNK (ON DAY 1)
     Route: 065
  15. METHOTREXATE SODIUM. [Concomitant]
     Active Substance: METHOTREXATE SODIUM
     Dosage: 10 MG/M2, UNK (ON DAYS 3 AND 6)UNK
     Route: 065
  16. AZTREONAM. [Concomitant]
     Active Substance: AZTREONAM
     Indication: EVIDENCE BASED TREATMENT

REACTIONS (1)
  - Musculoskeletal pain [Recovered/Resolved]
